FAERS Safety Report 17752411 (Version 8)
Quarter: 2021Q2

REPORT INFORMATION
  Report Type: Report from Study
  Country: US (occurrence: US)
  Receive Date: 20200506
  Receipt Date: 20210410
  Transmission Date: 20210716
  Serious: No
  Sender: FDA-Public Use
  Company Number: NVSC2020US122867

PATIENT
  Sex: Male

DRUGS (1)
  1. COSENTYX [Suspect]
     Active Substance: SECUKINUMAB
     Indication: PRODUCT USED FOR UNKNOWN INDICATION
     Dosage: UNK UNK, UNKNOWN
     Route: 065

REACTIONS (5)
  - Product dose omission issue [Unknown]
  - Weight increased [Unknown]
  - Pain [Unknown]
  - Psoriasis [Unknown]
  - Amnesia [Unknown]
